FAERS Safety Report 17229535 (Version 1)
Quarter: 2020Q1

REPORT INFORMATION
  Report Type: Spontaneous
  Country: US (occurrence: US)
  Receive Date: 20200103
  Receipt Date: 20200103
  Transmission Date: 20200409
  Serious: No
  Sender: FDA-Public Use
  Company Number: US-BIOGEN-2020BI00823706

PATIENT
  Age: 42 Year
  Sex: Female
  Weight: 58.11 kg

DRUGS (3)
  1. CURCUMIN [Concomitant]
     Active Substance: CURCUMIN
     Route: 065
  2. PSYLLIUM [Concomitant]
     Active Substance: PLANTAGO SEED
     Route: 065
  3. TECFIDERA [Suspect]
     Active Substance: DIMETHYL FUMARATE
     Indication: MULTIPLE SCLEROSIS
     Route: 048
     Dates: start: 20191217

REACTIONS (1)
  - Malaise [Recovered/Resolved]

NARRATIVE: CASE EVENT DATE: 20191217
